FAERS Safety Report 19172571 (Version 2)
Quarter: 2021Q2

REPORT INFORMATION
  Report Type: Spontaneous
  Country: NZ (occurrence: NZ)
  Receive Date: 20210423
  Receipt Date: 20210429
  Transmission Date: 20210717
  Serious: Yes (Hospitalization, Other)
  Sender: FDA-Public Use
  Company Number: NZ-SA-2021SA132493

PATIENT
  Age: 67 Year
  Sex: Male

DRUGS (4)
  1. PREDNISONE. [Suspect]
     Active Substance: PREDNISONE
     Indication: ENCEPHALITIS AUTOIMMUNE
     Dosage: UNK
  2. TRIAMCINOLONE ACETONIDE. [Suspect]
     Active Substance: TRIAMCINOLONE ACETONIDE
     Indication: CYSTOID MACULAR OEDEMA
  3. TRIAMCINOLONE ACETONIDE. [Suspect]
     Active Substance: TRIAMCINOLONE ACETONIDE
     Indication: RETINAL VEIN OCCLUSION
     Dosage: UNK
     Route: 031
  4. AZATHIOPRINE. [Suspect]
     Active Substance: AZATHIOPRINE
     Indication: ENCEPHALITIS AUTOIMMUNE
     Dosage: UNK

REACTIONS (7)
  - Necrotising retinitis [Unknown]
  - Uveitis [Unknown]
  - Cytomegalovirus chorioretinitis [Unknown]
  - Eye pain [Unknown]
  - Vision blurred [Unknown]
  - Visual impairment [Unknown]
  - Rhegmatogenous retinal detachment [Unknown]

NARRATIVE: CASE EVENT DATE: 2019
